FAERS Safety Report 10439293 (Version 3)
Quarter: 2015Q1

REPORT INFORMATION
  Report Type: Spontaneous
  Country: FR (occurrence: FR)
  Receive Date: 20140908
  Receipt Date: 20150218
  Transmission Date: 20150720
  Serious: Yes (Life-Threatening, Hospitalization)
  Sender: FDA-Public Use
  Company Number: FR-TEVA-462868ISR

PATIENT
  Age: 23 Year
  Sex: Female

DRUGS (1)
  1. ANTADYS 100MG [Suspect]
     Active Substance: FLURBIPROFEN
     Indication: DYSMENORRHOEA
     Dates: start: 20130724, end: 20130726

REACTIONS (3)
  - Peritoneal haemorrhage [Recovered/Resolved with Sequelae]
  - C-reactive protein increased [Unknown]
  - Abdominal pain [Unknown]

NARRATIVE: CASE EVENT DATE: 20131227
